FAERS Safety Report 6046188-0 (Version None)
Quarter: 2009Q1

REPORT INFORMATION
  Report Type: 
  Country: None (occurrence: None)
  Receive Date: 20090122
  Receipt Date: 20090107
  Transmission Date: 20090719
  Serious: Yes (Hospitalization)
  Sender: FDA-Public Use
  Company Number: FR-CELGENEUS-056-20484-08121334

PATIENT
  Sex: Male
  Weight: 75 kg

DRUGS (1)
  1. INNOHEP [Suspect]
     Route: 058
     Dates: start: 20081110, end: 20081216

REACTIONS (4)
  - MEDICATION ERROR [None]
  - PHLEBITIS [None]
  - PULMONARY EMBOLISM [None]
  - UNDERDOSE [None]
